FAERS Safety Report 14705712 (Version 1)
Quarter: 2018Q2

REPORT INFORMATION
  Report Type: Spontaneous
  Country: DE (occurrence: DE)
  Receive Date: 20180402
  Receipt Date: 20180402
  Transmission Date: 20180711
  Serious: Yes (Other)
  Sender: FDA-Public Use
  Company Number: DE-TEVA-2018-DE-874075

PATIENT
  Age: 63 Year
  Sex: Female

DRUGS (1)
  1. RATIOGRASTIM 30 MIO. I.E./0,5 ML INJEKTIONS- ODER INFUSIONSLOESUNG [Suspect]
     Active Substance: FILGRASTIM
     Dosage: 30 MIO IU/ 0.5 ML ON FRIDAY, SATURDAY AND SUNDAY
     Dates: start: 201803

REACTIONS (10)
  - Bronchitis [Not Recovered/Not Resolved]
  - Oedema peripheral [Not Recovered/Not Resolved]
  - Lung infection [Not Recovered/Not Resolved]
  - Bronchial disorder [Not Recovered/Not Resolved]
  - Platelet count abnormal [Unknown]
  - Pain [Not Recovered/Not Resolved]
  - General physical health deterioration [Not Recovered/Not Resolved]
  - Cough [Not Recovered/Not Resolved]
  - Spinal pain [Not Recovered/Not Resolved]
  - Rhonchi [Not Recovered/Not Resolved]

NARRATIVE: CASE EVENT DATE: 201803
